FAERS Safety Report 4528600-9 (Version None)
Quarter: 2004Q4

REPORT INFORMATION
  Report Type: 
  Country: None (occurrence: None)
  Receive Date: 20041216
  Receipt Date: 20041214
  Transmission Date: 20050328
  Serious: Yes (Death)
  Sender: FDA-Public Use
  Company Number: PHBS2004JP16663

PATIENT
  Age: 28 Year
  Sex: Male

DRUGS (2)
  1. MEVALOTIN [Concomitant]
     Dosage: 10 MG/DAY
  2. STARLIX [Suspect]
     Indication: DIABETES MELLITUS
     Dosage: 270 MG/DAY
     Route: 048
     Dates: start: 20041130

REACTIONS (1)
  - ACUTE MYOCARDIAL INFARCTION [None]
